FAERS Safety Report 20908094 (Version 1)
Quarter: 2022Q2

REPORT INFORMATION
  Report Type: Report from Study
  Country: US (occurrence: US)
  Receive Date: 20220602
  Receipt Date: 20220602
  Transmission Date: 20220721
  Serious: No
  Sender: FDA-Public Use
  Company Number: US-ACADIA PHARMACEUTICALS INC.-ACA-2022-PIM-001653

PATIENT
  Sex: Male

DRUGS (4)
  1. NUPLAZID [Suspect]
     Active Substance: PIMAVANSERIN TARTRATE
     Indication: Parkinson^s disease
     Dosage: 34 MILLIGRAM, QD
     Route: 048
     Dates: start: 202104
  2. NUPLAZID [Suspect]
     Active Substance: PIMAVANSERIN TARTRATE
     Indication: Hallucination
  3. NUPLAZID [Suspect]
     Active Substance: PIMAVANSERIN TARTRATE
     Indication: Delusion
  4. CARBIDOPA\LEVODOPA [Concomitant]
     Active Substance: CARBIDOPA\LEVODOPA
     Dosage: CUT HIS CARBIDOPA/LEVODOPA IN 1/2 TO SEE IF THAT WOULD HELP

REACTIONS (9)
  - Condition aggravated [Unknown]
  - Mood altered [Unknown]
  - Stubbornness [Unknown]
  - Disorientation [Unknown]
  - Product dose omission issue [Unknown]
  - Abnormal behaviour [Unknown]
  - Drug ineffective [Unknown]
  - Agitation [Unknown]
  - Hallucination [Unknown]
